FAERS Safety Report 6667073-7 (Version None)
Quarter: 2010Q2

REPORT INFORMATION
  Report Type: 
  Country: None (occurrence: None)
  Receive Date: 20100402
  Receipt Date: 20100402
  Transmission Date: 20101027
  Serious: No
  Sender: FDA-Public Use
  Company Number: None

PATIENT
  Age: 69 Year
  Sex: Male
  Weight: 68.2 kg

DRUGS (1)
  1. FAMOTIDINE [Suspect]
     Indication: DYSPEPSIA
     Dosage: 20 MG ONCE DAILY ORAL
     Route: 048
     Dates: start: 20100301, end: 20100401

REACTIONS (3)
  - DRUG INEFFECTIVE [None]
  - PRODUCT LOT NUMBER ISSUE [None]
  - PRODUCT SUBSTITUTION ISSUE [None]
